FAERS Safety Report 8772878 (Version 2)
Quarter: 2013Q4

REPORT INFORMATION
  Report Type: Spontaneous
  Country: US (occurrence: US)
  Receive Date: 20120907
  Receipt Date: 20131031
  Transmission Date: 20140711
  Serious: Yes (Life-Threatening, Congenital Anomaly, Other)
  Sender: FDA-Public Use
  Company Number: US-PFIZER INC-2012218940

PATIENT
  Sex: Female
  Weight: 3 kg

DRUGS (4)
  1. EFFEXOR [Suspect]
     Indication: DEPRESSION
     Dosage: UNK
     Route: 064
  2. EFFEXOR [Suspect]
     Indication: ANXIETY
  3. EFFEXOR XR [Suspect]
     Indication: DEPRESSION
     Dosage: 75 MG, 1X/DAY
     Route: 064
     Dates: start: 20030503
  4. EFFEXOR XR [Suspect]
     Indication: ANXIETY

REACTIONS (9)
  - Maternal exposure timing unspecified [Unknown]
  - Hypoplastic left heart syndrome [Unknown]
  - Ventricular septal defect [Unknown]
  - Coarctation of the aorta [Unknown]
  - Mitral valve hypoplasia [Unknown]
  - Tricuspid valve incompetence [Unknown]
  - Pulmonary valve incompetence [Unknown]
  - Atrial septal defect [Unknown]
  - Right ventricular hypertrophy [Unknown]
